FAERS Safety Report 7320703-9 (Version None)
Quarter: 2011Q1

REPORT INFORMATION
  Report Type: 
  Country: None (occurrence: None)
  Receive Date: 20110228
  Receipt Date: 20110222
  Transmission Date: 20110831
  Serious: Yes (Hospitalization, Other)
  Sender: FDA-Public Use
  Company Number: US-PFIZER INC-2010157026

PATIENT
  Sex: Female

DRUGS (10)
  1. CHANTIX [Suspect]
     Indication: SMOKING CESSATION THERAPY
     Dosage: CHANTIX STARTING PACKS
     Dates: start: 20081008, end: 20090301
  2. PREVACID [Concomitant]
     Indication: GASTROOESOPHAGEAL REFLUX DISEASE
     Dosage: UNK
     Dates: start: 20040101, end: 20090101
  3. NICOTINE [Concomitant]
     Indication: SMOKING CESSATION THERAPY
     Dosage: UNK
     Dates: start: 20060101, end: 20090101
  4. LYRICA [Concomitant]
     Indication: NEURALGIA
     Dosage: UNK
     Dates: start: 20060101, end: 20090101
  5. HYDROCODONE [Concomitant]
     Indication: ANALGESIC THERAPY
     Dosage: UNK
     Dates: start: 20070101, end: 20090101
  6. CIPROFLOXACIN [Concomitant]
     Indication: ANTIBIOTIC THERAPY
     Dosage: UNK
     Dates: start: 20060101, end: 20090101
  7. VALSARTAN [Concomitant]
     Indication: HYPERTENSION
     Dosage: UNK
     Dates: start: 20070101, end: 20090101
  8. ABILIFY [Concomitant]
     Dosage: UNK
     Dates: start: 20040101, end: 20090101
  9. ATIVAN [Concomitant]
     Indication: ANXIETY
     Dosage: UNK
     Dates: start: 20040101, end: 20090101
  10. RISPERDAL [Concomitant]
     Indication: SCHIZOAFFECTIVE DISORDER
     Dosage: UNK
     Dates: start: 20070101, end: 20090101

REACTIONS (17)
  - LOSS OF CONSCIOUSNESS [None]
  - MULTIPLE INJURIES [None]
  - UMBILICAL HERNIA [None]
  - SUICIDAL IDEATION [None]
  - CONVULSION [None]
  - ROAD TRAFFIC ACCIDENT [None]
  - ANXIETY [None]
  - DEPRESSION [None]
  - VISION BLURRED [None]
  - INSOMNIA [None]
  - SPINAL DEFORMITY [None]
  - SCHIZOAFFECTIVE DISORDER [None]
  - PARANOIA [None]
  - MUSCLE SPASMS [None]
  - FEELING ABNORMAL [None]
  - NERVOUSNESS [None]
  - HALLUCINATION, AUDITORY [None]
